FAERS Safety Report 4354420-4 (Version None)
Quarter: 2004Q2

REPORT INFORMATION
  Report Type: 
  Country: None (occurrence: None)
  Receive Date: 20040503
  Receipt Date: 20040420
  Transmission Date: 20050107
  Serious: Yes (Hospitalization, Disabling)
  Sender: FDA-Public Use
  Company Number: 200403631

PATIENT
  Age: 43 Year
  Sex: Male

DRUGS (5)
  1. TYLENOL 8 HOUR EXTENDED RELEASE PRODUCT [Suspect]
     Indication: PAIN
     Dosage: 1300 MG TID, PO
     Route: 048
     Dates: start: 20010813, end: 20010813
  2. TYLENOL 8 HOUR EXTENDED RELEASE PRODUCT [Suspect]
     Indication: PYREXIA
     Dosage: 1300 MG TID, PO
     Route: 048
     Dates: start: 20010813, end: 20010813
  3. TRAMADOL HCL [Concomitant]
  4. CEFIDINIR [Concomitant]
  5. NYSTATIN [Concomitant]

REACTIONS (2)
  - BLINDNESS [None]
  - STEVENS-JOHNSON SYNDROME [None]
